FAERS Safety Report 24642664 (Version 1)
Quarter: 2024Q4

REPORT INFORMATION
  Report Type: Spontaneous
  Country: US (occurrence: None)
  Receive Date: 20241120
  Receipt Date: 20241120
  Transmission Date: 20250115
  Serious: Yes (Other)
  Sender: Public
  Company Number: None

PATIENT
  Age: 61 Year
  Sex: Female
  Weight: 92.1 kg

DRUGS (1)
  1. JEMPERLI [Suspect]
     Active Substance: DOSTARLIMAB\DOSTARLIMAB-GXLY
     Indication: Endometrial cancer
     Dosage: 1000 MG EVERY 6 WEKS INTRAVENOUS
     Route: 042
     Dates: start: 20240619

REACTIONS (3)
  - Cerebral infarction [None]
  - Occipital lobe stroke [None]
  - Encephalomalacia [None]

NARRATIVE: CASE EVENT DATE: 20241011
